FAERS Safety Report 7804857-3 (Version None)
Quarter: 2011Q4

REPORT INFORMATION
  Report Type: 
  Country: None (occurrence: None)
  Receive Date: 20111010
  Receipt Date: 20110928
  Transmission Date: 20120403
  Serious: Yes (Hospitalization, Other)
  Sender: FDA-Public Use
  Company Number: CA-UCBSA-041168

PATIENT
  Age: 58 Year
  Sex: Female
  Weight: 80.9 kg

DRUGS (7)
  1. CIMZIA [Suspect]
     Indication: RHEUMATOID ARTHRITIS
     Route: 058
     Dates: start: 20110830
  2. ARAVA [Concomitant]
     Indication: RHEUMATOID ARTHRITIS
     Route: 048
  3. GLICLAZIDE [Concomitant]
     Indication: DIABETES MELLITUS
     Route: 048
     Dates: start: 20080101
  4. PANTOPRAZOLE SODIUM [Concomitant]
     Route: 048
  5. METFORMIN HYDROCHLORIDE [Concomitant]
     Indication: DIABETES MELLITUS
     Dosage: THREE TIMES A DAY
     Route: 048
     Dates: start: 20080101
  6. COVERSYL PLUS [Concomitant]
     Indication: HYPERTENSION
     Dosage: 4/1.25 MG EVERY DAY
     Dates: start: 20080101
  7. NAPROSYN [Concomitant]
     Indication: RHEUMATOID ARTHRITIS
     Dosage: TWICE DAILY
     Route: 048

REACTIONS (4)
  - GROIN PAIN [None]
  - BASILAR MIGRAINE [None]
  - URINARY TRACT INFECTION [None]
  - ARTHRALGIA [None]
